FAERS Safety Report 9798193 (Version 4)
Quarter: 2014Q1

REPORT INFORMATION
  Report Type: Spontaneous
  Country: US (occurrence: US)
  Receive Date: 20140106
  Receipt Date: 20140303
  Transmission Date: 20141002
  Serious: Yes (Other)
  Sender: FDA-Public Use
  Company Number: US-PFIZER INC-2014002460

PATIENT
  Age: 37 Year
  Sex: Male
  Weight: 72.56 kg

DRUGS (2)
  1. DILANTIN [Suspect]
     Indication: CONVULSION
     Dosage: 400 MG, ALTERNATE DAY
     Route: 048
  2. DILANTIN [Suspect]
     Dosage: 500 MG, ALTERNATE DAY
     Route: 048

REACTIONS (6)
  - Impaired work ability [Not Recovered/Not Resolved]
  - Impaired driving ability [Not Recovered/Not Resolved]
  - Drug ineffective [Unknown]
  - Anticonvulsant drug level decreased [Unknown]
  - Drug level fluctuating [Unknown]
  - Confusional state [Unknown]
